FAERS Safety Report 19273594 (Version 1)
Quarter: 2021Q2

REPORT INFORMATION
  Report Type: Spontaneous
  Country: US (occurrence: US)
  Receive Date: 20210518
  Receipt Date: 20210518
  Transmission Date: 20210717
  Serious: No
  Sender: FDA-Public Use
  Company Number: None

PATIENT
  Age: 61 Year
  Sex: Male
  Weight: 79.38 kg

DRUGS (4)
  1. CRESTOR [Concomitant]
     Active Substance: ROSUVASTATIN CALCIUM
  2. KERYDIN [Suspect]
     Active Substance: TAVABOROLE
     Indication: DERMATOPHYTOSIS OF NAIL
     Dosage: APPLY AS DIRECTED
     Route: 061
     Dates: start: 20180906
  3. CLOBETASOL [Concomitant]
     Active Substance: CLOBETASOL
  4. BUPROPION. [Concomitant]
     Active Substance: BUPROPION

REACTIONS (1)
  - Pancreatitis [None]
